FAERS Safety Report 25487747 (Version 2)
Quarter: 2025Q3

REPORT INFORMATION
  Report Type: Report from Study
  Country: CA (occurrence: CA)
  Receive Date: 20250627
  Receipt Date: 20250715
  Transmission Date: 20251020
  Serious: No
  Sender: BIOCON
  Company Number: CA-BIOCON BIOLOGICS LIMITED-2022M1029857

PATIENT

DRUGS (1)
  1. HULIO [Suspect]
     Active Substance: ADALIMUMAB-FKJP
     Indication: Rheumatoid arthritis
     Route: 058
     Dates: start: 20210527

REACTIONS (1)
  - Off label use [Unknown]
